FAERS Safety Report 6811383-7 (Version None)
Quarter: 2010Q2

REPORT INFORMATION
  Report Type: 
  Country: None (occurrence: None)
  Receive Date: 20100630
  Receipt Date: 20100406
  Transmission Date: 20101027
  Serious: Yes (Other)
  Sender: FDA-Public Use
  Company Number: US-AMGEN-QUU403933

PATIENT
  Sex: Female

DRUGS (22)
  1. EPOGEN [Suspect]
     Indication: DIALYSIS
  2. ADVAIR DISKUS 100/50 [Concomitant]
  3. HYDROXYZINE [Concomitant]
  4. ALBUTEROL [Concomitant]
  5. LISINOPRIL [Concomitant]
  6. ALLEGRA [Concomitant]
  7. REGLAN [Concomitant]
  8. ASPIRIN [Concomitant]
  9. NITRO-BID [Concomitant]
  10. CARVEDILOL [Concomitant]
  11. DIATX [Concomitant]
  12. CLONIDINE [Concomitant]
  13. SEVELAMER [Concomitant]
  14. DETROL [Concomitant]
  15. VITAMIN B-12 [Concomitant]
  16. BENTYL [Concomitant]
  17. REQUIP [Concomitant]
  18. EVISTA [Concomitant]
  19. SIMVASTATIN [Concomitant]
  20. FAMOTIDINE [Concomitant]
  21. TESSALON [Concomitant]
  22. LORTAB [Concomitant]

REACTIONS (2)
  - ANAEMIA [None]
  - DRUG INEFFECTIVE [None]
